FAERS Safety Report 8158713-4 (Version None)
Quarter: 2012Q1

REPORT INFORMATION
  Report Type: 
  Country: None (occurrence: None)
  Receive Date: 20120217
  Receipt Date: 20120203
  Transmission Date: 20120608
  Serious: Yes (Life-Threatening, Hospitalization)
  Sender: FDA-Public Use
  Company Number: 2012VX000592

PATIENT
  Age: 50 Year
  Sex: Male

DRUGS (7)
  1. CARBAMAZEPINE [Suspect]
     Indication: PRODUCT USED FOR UNKNOWN INDICATION
     Dosage: 8600 MG;X1
     Dates: start: 20101101, end: 20101101
  2. TRAZODONE HCL [Suspect]
     Indication: DEPRESSION
     Dosage: 2250 MG;X1;
     Dates: start: 20050501, end: 20101101
  3. TRAZODONE HCL [Suspect]
     Indication: DEPRESSION
     Dosage: 2250 MG;X1;
     Dates: start: 20101101, end: 20101101
  4. ZELAPAR [Suspect]
     Indication: DEPRESSION
     Dosage: 10 MG;QD; 195 MG;X1;
     Dates: start: 20101101, end: 20101101
  5. ZELAPAR [Suspect]
     Indication: DEPRESSION
     Dosage: 10 MG;QD; 195 MG;X1;
     Dates: start: 20050501, end: 20101101
  6. VALPROATE SODIUM [Suspect]
     Indication: PRODUCT USED FOR UNKNOWN INDICATION
     Dosage: 16000 MG;X1;
     Dates: start: 20101101, end: 20101101
  7. NITRAZEPAM [Suspect]
     Indication: PRODUCT USED FOR UNKNOWN INDICATION
     Dosage: 70 MG;X1;
     Dates: start: 20101101, end: 20101101

REACTIONS (12)
  - PNEUMONIA ASPIRATION [None]
  - TONIC CONVULSION [None]
  - HYPERHIDROSIS [None]
  - MYOCLONUS [None]
  - SEROTONIN SYNDROME [None]
  - HALLUCINATION, VISUAL [None]
  - OVERDOSE [None]
  - RESPIRATORY FAILURE [None]
  - GRAND MAL CONVULSION [None]
  - CONFUSIONAL STATE [None]
  - SUICIDE ATTEMPT [None]
  - COMA [None]
